FAERS Safety Report 5381266-0 (Version None)
Quarter: 2007Q3

REPORT INFORMATION
  Report Type: 
  Country: None (occurrence: None)
  Receive Date: 20070702
  Receipt Date: 20070413
  Transmission Date: 20080115
  Serious: Yes (Hospitalization)
  Sender: FDA-Public Use
  Company Number: SPV1-2007-02283

PATIENT
  Age: 34 Year

DRUGS (1)
  1. PENTASA [Suspect]
     Indication: COLITIS ULCERATIVE
     Dosage: 750 MG 3X'S DAILY, ORAL
     Route: 049
     Dates: start: 20070302, end: 20070312

REACTIONS (3)
  - APLASTIC ANAEMIA [None]
  - HEPATIC FUNCTION ABNORMAL [None]
  - URTICARIA [None]
